FAERS Safety Report 23309347 (Version 15)
Quarter: 2024Q3

REPORT INFORMATION
  Report Type: Spontaneous
  Country: CA (occurrence: CA)
  Receive Date: 20231218
  Receipt Date: 20240924
  Transmission Date: 20241016
  Serious: Yes (Death, Hospitalization, Other)
  Sender: KARYOPHARM THERAPEUTICS
  Company Number: CA-KARYOPHARM-2023KPT002194

PATIENT

DRUGS (13)
  1. XPOVIO [Suspect]
     Active Substance: SELINEXOR
     Indication: Plasma cell myeloma
     Dosage: 40MG (2X 20MG) ONCE WEEK
     Route: 048
     Dates: start: 20231025
  2. XPOVIO [Suspect]
     Active Substance: SELINEXOR
     Dosage: 40MG (2X20MG) ONCE A WEEK
     Route: 048
     Dates: start: 202311
  3. XPOVIO [Suspect]
     Active Substance: SELINEXOR
     Dosage: UNK
     Route: 048
     Dates: start: 202401
  4. XPOVIO [Suspect]
     Active Substance: SELINEXOR
     Dosage: 40MG ONCE A WEEK FOR 4 WEEKS
     Route: 065
     Dates: start: 202403
  5. XPOVIO [Suspect]
     Active Substance: SELINEXOR
     Dosage: 60 MG, WEEKLY, TAKE 3 TABLETS (DOSE=60 MG) BY MOUTH ONCE WEEKLY FOR 5 WEEKS. INSTRUCTION: INTENTIONA
     Route: 048
     Dates: start: 20240411, end: 202406
  6. XPOVIO [Suspect]
     Active Substance: SELINEXOR
     Dosage: 60 MG, ONCE A WEEK
     Route: 048
     Dates: start: 202406, end: 202406
  7. XPOVIO [Suspect]
     Active Substance: SELINEXOR
     Dosage: 60 MG, WEEKLY/EVERY 1 WEEK
     Route: 048
     Dates: end: 20240605
  8. XPOVIO [Suspect]
     Active Substance: SELINEXOR
     Dosage: 60 MG, ONCE A WEEK
     Route: 048
     Dates: start: 202406, end: 202407
  9. XPOVIO [Suspect]
     Active Substance: SELINEXOR
     Dosage: 60 MG (20MG 3 TABLETS), WEEKLY
     Route: 065
     Dates: start: 202407, end: 202407
  10. XPOVIO [Suspect]
     Active Substance: SELINEXOR
     Dosage: 60 MG, WEEKLY
     Route: 065
     Dates: start: 202408, end: 202408
  11. XPOVIO [Suspect]
     Active Substance: SELINEXOR
     Dosage: 60 MG, WEEKLY
     Route: 048
     Dates: end: 202409
  12. DEXAMETHASONE [Concomitant]
     Active Substance: DEXAMETHASONE
     Dosage: UNK
  13. POMALIDOMIDE [Concomitant]
     Active Substance: POMALIDOMIDE
     Dosage: UNK

REACTIONS (20)
  - Death [Fatal]
  - Malignant melanoma [Not Recovered/Not Resolved]
  - Seizure [Not Recovered/Not Resolved]
  - Cerebral haemorrhage [Unknown]
  - Brain oedema [Unknown]
  - Cerebrovascular accident [Unknown]
  - Hemiplegia [Unknown]
  - Insomnia [Unknown]
  - Cellulitis [Not Recovered/Not Resolved]
  - Peripheral swelling [Unknown]
  - Malaise [Not Recovered/Not Resolved]
  - Nasopharyngitis [Unknown]
  - Skin ulcer [Unknown]
  - Inflammation [Unknown]
  - Central nervous system lesion [Unknown]
  - Nausea [Recovered/Resolved]
  - Diarrhoea [Unknown]
  - Fatigue [Unknown]
  - Product dose omission issue [Unknown]
  - Off label use [Not Recovered/Not Resolved]

NARRATIVE: CASE EVENT DATE: 20230101
